FAERS Safety Report 25139055 (Version 1)
Quarter: 2025Q1

REPORT INFORMATION
  Report Type: Spontaneous
  Country: FR (occurrence: FR)
  Receive Date: 20250331
  Receipt Date: 20250331
  Transmission Date: 20250409
  Serious: Yes (Other)
  Sender: CELLTRION
  Company Number: FR-CELLTRION INC.-2025FR008971

PATIENT

DRUGS (3)
  1. INFLIXIMAB [Suspect]
     Active Substance: INFLIXIMAB
     Indication: Colitis ulcerative
     Route: 058
     Dates: start: 20240813
  2. INFLIXIMAB [Suspect]
     Active Substance: INFLIXIMAB
     Dosage: INCREASED 240MG EVERY 14 DAYS ON 10-OCT-2024 DUE TO END-OF-DOSE EFFECT
     Route: 058
     Dates: start: 20241010
  3. INFLIXIMAB [Suspect]
     Active Substance: INFLIXIMAB
     Dosage: DOSAGE REDUCTION TO 120 MG EVERY 14 DAYS
     Route: 058
     Dates: start: 20250116

REACTIONS (2)
  - Obstructive airways disorder [Recovered/Resolved]
  - Intentional product use issue [Unknown]
